FAERS Safety Report 7359872-3 (Version None)
Quarter: 2011Q1

REPORT INFORMATION
  Report Type: 
  Country: None (occurrence: None)
  Receive Date: 20110307
  Receipt Date: 20110222
  Transmission Date: 20110831
  Serious: Yes (Other)
  Sender: FDA-Public Use
  Company Number: 028043

PATIENT
  Age: 30 Year
  Sex: Female

DRUGS (4)
  1. LACOSAMIDE [Suspect]
     Indication: EPILEPSY
     Dosage: (50 MG, DAILY ORAL) : (400 MG, DAILY ORAL)
     Route: 048
     Dates: start: 20100129, end: 20100101
  2. LACOSAMIDE [Suspect]
     Indication: EPILEPSY
     Dosage: (50 MG, DAILY ORAL) : (400 MG, DAILY ORAL)
     Route: 048
     Dates: start: 20100708
  3. CLONAZEPAM [Concomitant]
  4. LAMICTAL [Concomitant]

REACTIONS (1)
  - BLINDNESS [None]
